FAERS Safety Report 23449706 (Version 2)
Quarter: 2024Q1

REPORT INFORMATION
  Report Type: Other
  Country: US (occurrence: US)
  Receive Date: 20240129
  Receipt Date: 20240208
  Transmission Date: 20240410
  Serious: Yes (Hospitalization)
  Sender: FDA-Public Use
  Company Number: US-ALVOGEN-2024092917

PATIENT
  Age: 57 Year
  Sex: Female

DRUGS (2)
  1. FENTANYL [Suspect]
     Active Substance: FENTANYL\FENTANYL CITRATE
     Indication: Product used for unknown indication
  2. OXYCODONE [Suspect]
     Active Substance: OXYCODONE\OXYCODONE HYDROCHLORIDE
     Indication: Product used for unknown indication
     Dosage: WAS PRESCRIBED

REACTIONS (7)
  - Toxic leukoencephalopathy [Recovering/Resolving]
  - Substance-induced psychotic disorder [Recovering/Resolving]
  - Acute kidney injury [Unknown]
  - Infection [Unknown]
  - Substance abuse [Unknown]
  - Intentional product use issue [Unknown]
  - Overdose [Unknown]
